FAERS Safety Report 4556664-5 (Version None)
Quarter: 2005Q1

REPORT INFORMATION
  Report Type: 
  Country: None (occurrence: None)
  Receive Date: 20050114
  Receipt Date: 20050104
  Transmission Date: 20050727
  Serious: Yes (Other)
  Sender: FDA-Public Use
  Company Number: 2005004059

PATIENT
  Age: 71 Year
  Sex: Male
  Weight: 77.1115 kg

DRUGS (4)
  1. CELEBREX [Suspect]
     Indication: ARTHRALGIA
     Dates: start: 20000101
  2. CELEBREX [Suspect]
     Indication: HIP ARTHROPLASTY
     Dates: start: 20000101
  3. CELEBREX [Suspect]
     Indication: OSTEOARTHRITIS
     Dates: start: 20000101
  4. GLUCOSAMINE SULFATE (GLUCOSAMINE SULFATE) [Concomitant]

REACTIONS (2)
  - ARTHRALGIA [None]
  - PAIN [None]
